FAERS Safety Report 7597555-5 (Version None)
Quarter: 2011Q3

REPORT INFORMATION
  Report Type: 
  Country: None (occurrence: None)
  Receive Date: 20110708
  Receipt Date: 20110705
  Transmission Date: 20111222
  Serious: Yes (Other)
  Sender: FDA-Public Use
  Company Number: JP-B.I. PHARMACEUTICALS,INC./RIDGEFIELD-2011-BP-17006NB

PATIENT
  Age: 73 Year
  Sex: Male

DRUGS (6)
  1. VALSARTAN  AND HYDROCHLOROTHIAZIDE [Concomitant]
  2. PERINDOPRIL ERBUMINE [Concomitant]
  3. PRADAXA [Suspect]
     Indication: ATRIAL FIBRILLATION
     Dosage: 220 MG
     Route: 048
     Dates: start: 20110607, end: 20110620
  4. BEZATOL SR [Concomitant]
  5. AGENTS USED FOR COMMON COLD [Suspect]
     Route: 065
  6. CARVEDILOL [Concomitant]

REACTIONS (1)
  - RENAL FAILURE [None]
